FAERS Safety Report 8606210-1 (Version None)
Quarter: 2012Q3

REPORT INFORMATION
  Report Type: 
  Country: None (occurrence: None)
  Receive Date: 20120820
  Receipt Date: 20120813
  Transmission Date: 20120928
  Serious: Yes (Other)
  Sender: FDA-Public Use
  Company Number: US-ACTELION-A-US2012-67717

PATIENT
  Age: 71 Year
  Sex: Female

DRUGS (4)
  1. PLAVIX [Concomitant]
  2. VENTAVIS [Suspect]
     Indication: PULMONARY ARTERIAL HYPERTENSION
     Dosage: 2.5 MCG, UNK
     Route: 055
     Dates: start: 20120620
  3. ASPIRIN [Concomitant]
  4. LETAIRIS [Concomitant]

REACTIONS (11)
  - HEADACHE [None]
  - DIZZINESS [None]
  - BACK PAIN [None]
  - URINARY TRACT INFECTION [None]
  - ASTHENIA [None]
  - TENSION [None]
  - OXYGEN SATURATION DECREASED [None]
  - RECTAL HAEMORRHAGE [None]
  - PAIN [None]
  - NAUSEA [None]
  - HYPOTENSION [None]
